FAERS Safety Report 7700126-0 (Version None)
Quarter: 2011Q3

REPORT INFORMATION
  Report Type: 
  Country: None (occurrence: None)
  Receive Date: 20110822
  Receipt Date: 20110816
  Transmission Date: 20111222
  Serious: No
  Sender: FDA-Public Use
  Company Number: US-PFIZER INC-2011189407

PATIENT
  Sex: Female

DRUGS (2)
  1. TENORMIN [Concomitant]
  2. NORVASC [Suspect]
     Dosage: 7.5 MG, 1X/DAY

REACTIONS (2)
  - RASH [None]
  - JOINT SWELLING [None]
